FAERS Safety Report 10098030 (Version 2)
Quarter: 2014Q2

REPORT INFORMATION
  Report Type: Spontaneous
  Country: US (occurrence: None)
  Receive Date: 20140421
  Receipt Date: 20140429
  Transmission Date: 20141212
  Serious: Yes (Other)
  Sender: FDA-Public Use
  Company Number: AUR-APL-2014-04547

PATIENT
  Sex: Female
  Weight: 58.97 kg

DRUGS (2)
  1. ALENDRONIC ACID [Suspect]
     Indication: BONE DENSITY DECREASED
     Dosage: (70 MG, 1 IN 1 WK), UNKNOWN
     Dates: start: 20140312
  2. COZAAR (LOSARTAN POTASSIUM) (50 MILLIGRAM, TABLETS) (LOSARTAN POTASSIUM) [Concomitant]

REACTIONS (2)
  - Enuresis [None]
  - Urinary incontinence [None]
